FAERS Safety Report 7773729-5 (Version None)
Quarter: 2011Q3

REPORT INFORMATION
  Report Type: 
  Country: None (occurrence: None)
  Receive Date: 20110920
  Receipt Date: 20110906
  Transmission Date: 20111222
  Serious: Yes (Death)
  Sender: FDA-Public Use
  Company Number: UTC-010017

PATIENT
  Age: 63 Year
  Sex: Female
  Weight: 51.36 kg

DRUGS (1)
  1. REMODULIN [Suspect]
     Indication: PULMONARY ARTERIAL HYPERTENSION
     Dosage: 72 UG/KG (0.05 UG/KG, 1 IN 1 MIN), INTRAVENOUS
     Route: 042

REACTIONS (1)
  - DEATH [None]
